FAERS Safety Report 25471808 (Version 1)
Quarter: 2025Q2

REPORT INFORMATION
  Report Type: Spontaneous
  Country: EG (occurrence: EG)
  Receive Date: 20250624
  Receipt Date: 20250624
  Transmission Date: 20250717
  Serious: Yes (Hospitalization, Other)
  Sender: NOVO NORDISK
  Company Number: EG-NOVOPROD-1460268

PATIENT
  Sex: Male
  Weight: 3.5 kg

DRUGS (1)
  1. TRESIBA [Suspect]
     Active Substance: INSULIN DEGLUDEC
     Indication: Type 2 diabetes mellitus
     Dosage: 8 IU, QD
     Route: 064
     Dates: end: 20250317

REACTIONS (2)
  - Neonatal pneumonia [Unknown]
  - Foetal exposure during pregnancy [Recovered/Resolved]
